FAERS Safety Report 15299220 (Version 1)
Quarter: 2018Q4

REPORT INFORMATION
  Report Type: Other
  Country: US (occurrence: US)
  Receive Date: 20180821
  Receipt Date: 20180821
  Transmission Date: 20190204
  Serious: Yes (Other)
  Sender: FDA-Public Use
  Company Number: US-GUTHY-RENKER, LLC-2053991

PATIENT
  Age: 73 Year
  Sex: Female

DRUGS (1)
  1. MEANINGFUL BEAUTY DARK SPOT CORRECTING TREATMENT [Suspect]
     Active Substance: HYDROQUINONE
     Indication: SKIN DISCOLOURATION
     Dates: start: 20180710, end: 20180710

REACTIONS (1)
  - Allergic reaction to excipient [Recovered/Resolved]

NARRATIVE: CASE EVENT DATE: 20180710
